FAERS Safety Report 6768394-X (Version None)
Quarter: 2010Q2

REPORT INFORMATION
  Report Type: 
  Country: None (occurrence: None)
  Receive Date: 20100614
  Receipt Date: 20100603
  Transmission Date: 20101027
  Serious: Yes (Other)
  Sender: FDA-Public Use
  Company Number: US-PFIZER INC-2010070203

PATIENT
  Sex: Female
  Weight: 113 kg

DRUGS (4)
  1. TIKOSYN [Suspect]
     Dosage: 500 UG, 2X/DAY
     Route: 048
     Dates: start: 20091202
  2. NORVASC [Concomitant]
     Indication: BLOOD PRESSURE ABNORMAL
     Dosage: 10 MG, 1X/DAY
     Route: 048
  3. ACCUPRIL [Concomitant]
     Indication: BLOOD PRESSURE ABNORMAL
     Dosage: 80 MG, 1X/DAY
     Route: 048
  4. WARFARIN SODIUM [Concomitant]
     Indication: ATRIAL FIBRILLATION
     Dosage: 82.5 MG, WEEKLY
     Dates: start: 20091126

REACTIONS (2)
  - CELLULITIS [None]
  - OEDEMA PERIPHERAL [None]
